FAERS Safety Report 17483273 (Version 2)
Quarter: 2020Q2

REPORT INFORMATION
  Report Type: Spontaneous
  Country: HK (occurrence: HK)
  Receive Date: 20200302
  Receipt Date: 20200401
  Transmission Date: 20200713
  Serious: Yes (Death, Life-Threatening, Hospitalization, Other)
  Sender: FDA-Public Use
  Company Number: HK-PFIZER INC-2020082633

PATIENT
  Age: 86 Year
  Sex: Male

DRUGS (3)
  1. RISPERIDONE. [Suspect]
     Active Substance: RISPERIDONE
     Indication: AGGRESSION
     Dosage: UNK
     Dates: start: 201202
  2. VALPROIC ACID. [Suspect]
     Active Substance: VALPROIC ACID
     Indication: AGGRESSION
     Dosage: UNK
     Dates: start: 201202
  3. VENLAFAXINE HCL [Suspect]
     Active Substance: VENLAFAXINE HYDROCHLORIDE
     Indication: AGGRESSION
     Dosage: UNK
     Dates: start: 201202

REACTIONS (2)
  - Deep vein thrombosis [Fatal]
  - Pulmonary embolism [Fatal]

NARRATIVE: CASE EVENT DATE: 201202
